FAERS Safety Report 17816994 (Version 1)
Quarter: 2020Q2

REPORT INFORMATION
  Report Type: Spontaneous
  Country: ES (occurrence: ES)
  Receive Date: 20200522
  Receipt Date: 20200522
  Transmission Date: 20200714
  Serious: Yes (Hospitalization)
  Sender: FDA-Public Use
  Company Number: ES-MYLANLABS-2020M1047833

PATIENT
  Age: 56 Year
  Sex: Male

DRUGS (10)
  1. AZITHROMYCIN ANHYDROUS. [Suspect]
     Active Substance: AZITHROMYCIN ANHYDROUS
     Indication: PNEUMONIA
  2. TOCILIZUMAB. [Suspect]
     Active Substance: TOCILIZUMAB
     Indication: COVID-19 PNEUMONIA
  3. AZITHROMYCIN ANHYDROUS. [Suspect]
     Active Substance: AZITHROMYCIN ANHYDROUS
     Indication: COVID-19 PNEUMONIA
  4. HIDROXICLOROQUINA                  /00072601/ [Suspect]
     Active Substance: HYDROXYCHLOROQUINE
     Indication: COVID-19 PNEUMONIA
  5. TOCILIZUMAB. [Suspect]
     Active Substance: TOCILIZUMAB
     Indication: CORONAVIRUS INFECTION
     Dosage: 600 MG DIA
     Route: 042
     Dates: start: 20200402, end: 20200402
  6. TOCILIZUMAB. [Suspect]
     Active Substance: TOCILIZUMAB
     Indication: SEVERE ACUTE RESPIRATORY SYNDROME
  7. AZITHROMYCIN ANHYDROUS. [Suspect]
     Active Substance: AZITHROMYCIN ANHYDROUS
     Indication: CORONAVIRUS INFECTION
     Dosage: 500 MG DIA
     Route: 048
     Dates: start: 20200401, end: 20200403
  8. HIDROXICLOROQUINA                  /00072601/ [Suspect]
     Active Substance: HYDROXYCHLOROQUINE
     Indication: CORONAVIRUS INFECTION
     Dosage: 400 MG DIA
     Route: 048
     Dates: start: 20200401, end: 20200408
  9. HIDROXICLOROQUINA                  /00072601/ [Suspect]
     Active Substance: HYDROXYCHLOROQUINE
     Indication: PNEUMONIA
  10. ANAKINRA [Suspect]
     Active Substance: ANAKINRA
     Indication: COVID-19 PNEUMONIA
     Dosage: 100 MILLIGRAM
     Route: 058
     Dates: start: 20200403, end: 20200410

REACTIONS (2)
  - Off label use [Unknown]
  - Hepatitis [Recovered/Resolved]

NARRATIVE: CASE EVENT DATE: 20200406
